FAERS Safety Report 8882183 (Version 1)
Quarter: 2012Q4

REPORT INFORMATION
  Report Type: 
  Country: FR (occurrence: FR)
  Receive Date: 20121102
  Receipt Date: 20121102
  Transmission Date: 20130627
  Serious: Yes (Other)
  Sender: FDA-Public Use
  Company Number: FR-009507513-1210FRA012450

PATIENT
  Age: 2 Year
  Sex: Female

DRUGS (1)
  1. CELESTENE [Suspect]
     Indication: PRODUCT USED FOR UNKNOWN INDICATION
     Dosage: 3 Gtt, Once
     Route: 047
     Dates: start: 20120923, end: 20120923

REACTIONS (5)
  - Paraesthesia [Recovered/Resolved]
  - Burning sensation [Recovered/Resolved]
  - Ocular hyperaemia [Recovered/Resolved]
  - Medication error [Recovered/Resolved]
  - Incorrect route of drug administration [Recovered/Resolved]
